FAERS Safety Report 23108276 (Version 1)
Quarter: 2023Q4

REPORT INFORMATION
  Report Type: Spontaneous
  Country: US (occurrence: None)
  Receive Date: 20231023
  Receipt Date: 20231023
  Transmission Date: 20240109
  Serious: Yes (Hospitalization)
  Sender: FDA-Public Use
  Company Number: None

PATIENT
  Age: 83 Year
  Sex: Male

DRUGS (1)
  1. SOTALOL [Suspect]
     Active Substance: SOTALOL
     Dosage: FREQUENCY : DAILY;?
     Route: 048
     Dates: start: 20230219, end: 20230227

REACTIONS (5)
  - Heart rate irregular [None]
  - Palpitations [None]
  - Torsade de pointes [None]
  - Nasopharyngitis [None]
  - Ventricular arrhythmia [None]

NARRATIVE: CASE EVENT DATE: 20230227
